FAERS Safety Report 7477830-5 (Version None)
Quarter: 2011Q2

REPORT INFORMATION
  Report Type: 
  Country: None (occurrence: None)
  Receive Date: 20110511
  Receipt Date: 20110511
  Transmission Date: 20111010
  Serious: Yes (Hospitalization)
  Sender: FDA-Public Use
  Company Number: None

PATIENT
  Sex: Female
  Weight: 42 kg

DRUGS (6)
  1. SUNITINIB MALATE [Suspect]
     Indication: RENAL CANCER METASTATIC
     Dosage: 50MG ONCE DAILY
     Dates: start: 20101110, end: 20110405
  2. REGLAN [Concomitant]
  3. PHERGAN [Concomitant]
  4. FENTANYL-100 [Concomitant]
  5. LACTULOSE [Concomitant]
  6. COMPAZINE [Concomitant]

REACTIONS (3)
  - ABDOMINAL PAIN [None]
  - DISEASE PROGRESSION [None]
  - METASTATIC NEOPLASM [None]
